FAERS Safety Report 9868921 (Version 1)
Quarter: 2014Q1

REPORT INFORMATION
  Report Type: Spontaneous
  Country: US (occurrence: US)
  Receive Date: 20140204
  Receipt Date: 20140204
  Transmission Date: 20141002
  Serious: Yes (Hospitalization, Other)
  Sender: FDA-Public Use
  Company Number: US-ELI_LILLY_AND_COMPANY-US201401009078

PATIENT
  Sex: Female

DRUGS (21)
  1. HUMALOG LISPRO [Suspect]
     Indication: TYPE 2 DIABETES MELLITUS
     Dosage: 25 U, QD
     Route: 065
  2. HUMALOG LISPRO [Suspect]
     Dosage: UNK UNK, PRN
     Route: 065
  3. HUMALOG LISPRO [Suspect]
     Indication: TYPE 2 DIABETES MELLITUS
     Dosage: 25 U, QD
     Route: 065
  4. HUMALOG LISPRO [Suspect]
     Dosage: UNK UNK, PRN
     Route: 065
  5. HUMALOG LISPRO [Suspect]
     Dosage: 25 U, QD
     Route: 065
  6. HUMALOG LISPRO [Suspect]
     Dosage: UNK UNK, PRN
     Route: 065
  7. HUMALOG LISPRO [Suspect]
     Dosage: 25 U, QD
     Route: 065
  8. HUMALOG LISPRO [Suspect]
     Dosage: UNK UNK, PRN
     Route: 065
  9. LANTUS [Concomitant]
     Dosage: 50 U, QD
  10. GLIPIZIDE [Concomitant]
     Dosage: 5 DF, TID
  11. ZESTRIL [Concomitant]
     Dosage: 20 MG, UNKNOWN
  12. PLAVIX [Concomitant]
     Dosage: 75 MG, UNKNOWN
  13. METOPROLOL [Concomitant]
     Dosage: 50 MG, UNKNOWN
  14. HYDROCHLOROTHIAZIDE [Concomitant]
     Dosage: 25 MG, UNKNOWN
  15. SLO-NIACIN [Concomitant]
     Dosage: 500 MG, TID
  16. RANITIDINE [Concomitant]
     Dosage: 50 MG, TID
  17. CELEXA                             /00582602/ [Concomitant]
     Dosage: UNK, QD
  18. SYNTHROID [Concomitant]
     Dosage: 50 UG, QD
  19. PRAVACHOL [Concomitant]
     Dosage: 40 MG, QD
  20. NITROSTAT [Concomitant]
     Dosage: 0.4 MG, PRN
  21. ASPIRIN [Concomitant]
     Dosage: 81 MG, TID

REACTIONS (5)
  - Cerebrovascular accident [Unknown]
  - Hypoaesthesia [Not Recovered/Not Resolved]
  - Fall [Recovered/Resolved]
  - Upper limb fracture [Unknown]
  - Underdose [Recovered/Resolved]
